FAERS Safety Report 5451624-4 (Version None)
Quarter: 2007Q3

REPORT INFORMATION
  Report Type: 
  Country: None (occurrence: None)
  Receive Date: 20070913
  Receipt Date: 20070910
  Transmission Date: 20080115
  Serious: Yes (Life-Threatening, Hospitalization)
  Sender: FDA-Public Use
  Company Number: JP-BOEHRINGER INGELHEIM PHARMACEUTICALS, INC.-2007-BP-20707NB

PATIENT
  Sex: Female
  Weight: 54 kg

DRUGS (5)
  1. MICARDIS [Suspect]
     Indication: HYPERTENSION
     Route: 048
     Dates: start: 20060623
  2. ASPIRIN [Concomitant]
     Route: 048
     Dates: start: 20060419
  3. TICLOPIDINE HCL [Concomitant]
     Route: 048
     Dates: start: 20060419
  4. ADALAT [Concomitant]
     Route: 048
     Dates: start: 20060415
  5. LASIX [Concomitant]
     Route: 048
     Dates: start: 20060426

REACTIONS (1)
  - ANGINA UNSTABLE [None]
